FAERS Safety Report 8037235 (Version 2)
Quarter: 2012Q4

REPORT INFORMATION
  Report Type: 
  Country: JP (occurrence: JP)
  Receive Date: 20110715
  Receipt Date: 20121009
  Transmission Date: 20130627
  Serious: Yes (Other)
  Sender: FDA-Public Use
  Company Number: JP-ROCHE-789520

PATIENT
  Age: 60 Year
  Sex: Female

DRUGS (8)
  1. RIVOTRIL [Suspect]
     Indication: DEPRESSION
     Dosage: DOSAGE IS UNCERTAIN
     Route: 048
  2. LORAZEPAM [Suspect]
     Indication: DEPRESSION
     Dosage: DOSAGE IS UNCERTAIN, FORM:PERORAL AGENT
     Route: 048
  3. OLANZAPINE [Suspect]
     Indication: DEPRESSION
     Dosage: DOSAGE IS UNCERTAIN, FORM:PERORAL AGENT
     Route: 048
  4. PAROXETINE HYDROCHLORIDE [Suspect]
     Indication: DEPRESSION
     Dosage: DOSAGE IS UNCERTAIN, FORM:PERORAL AGENT
     Route: 048
  5. SODIUM VALPROATE [Suspect]
     Indication: DEPRESSION
     Dosage: DOSAGE IS UNCERTAIN, FORM:PERORAL AGENT
     Route: 048
  6. NITRAZEPAM [Suspect]
     Indication: DEPRESSION
     Dosage: DOSAGE IS UNCERTAIN, FORM:PERORAL AGENT
     Route: 048
  7. BIPERIDEN HYDROCHLORIDE [Suspect]
     Indication: DEPRESSION
     Dosage: DOSAGE IS UNCERTAIN, FORM:PERORAL AGENT
     Route: 048
  8. LEVOTHYROXINE SODIUM [Concomitant]
     Dosage: DOSAGE IS UNCERTAIN, FORM:PERORAL AGENT
     Route: 048

REACTIONS (2)
  - Pneumonia [Unknown]
  - Inappropriate antidiuretic hormone secretion [Unknown]
